FAERS Safety Report 11686117 (Version 1)
Quarter: 2015Q4

REPORT INFORMATION
  Report Type: Spontaneous
  Country: US (occurrence: US)
  Receive Date: 20151030
  Receipt Date: 20151030
  Transmission Date: 20160304
  Serious: Yes (Other)
  Sender: FDA-Public Use
  Company Number: US-009507513-1510USA012633

PATIENT
  Age: 78 Year
  Sex: Female

DRUGS (21)
  1. TRAMADOL HYDROCHLORIDE. [Suspect]
     Active Substance: TRAMADOL HYDROCHLORIDE
     Route: 048
  2. FOLIC ACID. [Concomitant]
     Active Substance: FOLIC ACID
     Route: 048
  3. PLAVIX [Suspect]
     Active Substance: CLOPIDOGREL BISULFATE
     Route: 048
  4. IRON (UNSPECIFIED) [Concomitant]
     Active Substance: IRON
     Route: 065
  5. ZYDONE [Concomitant]
     Active Substance: ACETAMINOPHEN\HYDROCODONE BITARTRATE
     Route: 048
  6. ALLOPURINOL. [Concomitant]
     Active Substance: ALLOPURINOL
     Route: 048
  7. OMEPRAZOLE. [Concomitant]
     Active Substance: OMEPRAZOLE
     Route: 048
  8. ASCORBIC ACID. [Concomitant]
     Active Substance: ASCORBIC ACID
     Route: 048
  9. LESCOL XL [Suspect]
     Active Substance: FLUVASTATIN SODIUM
     Route: 048
  10. PROCRIT [Concomitant]
     Active Substance: ERYTHROPOIETIN
     Route: 065
  11. FLONASE [Concomitant]
     Active Substance: FLUTICASONE PROPIONATE
     Route: 065
  12. SYNTHROID [Concomitant]
     Active Substance: LEVOTHYROXINE SODIUM
     Route: 048
  13. POLYETHYLENE GLYCOL 3350. [Suspect]
     Active Substance: POLYETHYLENE GLYCOL 3350
     Indication: PRODUCT USED FOR UNKNOWN INDICATION
     Dosage: UNK
     Route: 048
  14. ZETIA [Suspect]
     Active Substance: EZETIMIBE
     Route: 048
  15. AMLODIPINE BESYLATE (+) BENAZEPRIL HYDROCHLORIDE [Suspect]
     Active Substance: AMLODIPINE BESYLATE\BENAZEPRIL HYDROCHLORIDE
     Route: 048
  16. FOSAMAX [Suspect]
     Active Substance: ALENDRONATE SODIUM
     Route: 048
  17. ASPIRIN. [Concomitant]
     Active Substance: ASPIRIN
     Route: 048
  18. LYRICA [Concomitant]
     Active Substance: PREGABALIN
     Route: 048
  19. VITAMINS (UNSPECIFIED) [Concomitant]
     Active Substance: VITAMINS
     Route: 048
  20. METAMUCIL [Concomitant]
     Active Substance: PLANTAGO SEED
     Route: 048
  21. AVAPRO [Concomitant]
     Active Substance: IRBESARTAN
     Route: 048

REACTIONS (11)
  - Headache [Unknown]
  - Diarrhoea [Unknown]
  - Swollen tongue [Unknown]
  - Asthenia [Unknown]
  - Nausea [Unknown]
  - Vomiting [Unknown]
  - Dehydration [Unknown]
  - Fatigue [Unknown]
  - Dizziness [Unknown]
  - Retching [Unknown]
  - Condition aggravated [Unknown]
